FAERS Safety Report 25833842 (Version 1)
Quarter: 2025Q3

REPORT INFORMATION
  Report Type: Report from Study
  Country: EU (occurrence: EU)
  Receive Date: 20250923
  Receipt Date: 20250923
  Transmission Date: 20251020
  Serious: Yes (Other)
  Sender: TAKEDA
  Company Number: EU-TAKEDA-2023TUS122436

PATIENT
  Age: 6 Year
  Sex: Female

DRUGS (6)
  1. TEDUGLUTIDE [Suspect]
     Active Substance: TEDUGLUTIDE
     Indication: Short-bowel syndrome
     Dosage: 0.6 MILLIGRAM, QD
     Dates: start: 20210625, end: 20221221
  2. TEDUGLUTIDE [Suspect]
     Active Substance: TEDUGLUTIDE
     Dosage: 0.8 MILLIGRAM, QD
     Dates: start: 20221221, end: 20240212
  3. TEDUGLUTIDE [Suspect]
     Active Substance: TEDUGLUTIDE
     Dosage: 0.9 MILLIGRAM, QD
     Dates: start: 20240212, end: 20250827
  4. TEDUGLUTIDE [Suspect]
     Active Substance: TEDUGLUTIDE
     Dosage: 1 MILLIGRAM, QD
     Dates: start: 20250827
  5. Hibor [Concomitant]
     Indication: Thrombosis
     Dosage: 1600 INTERNATIONAL UNIT, QD
     Dates: start: 20240522, end: 20240918
  6. URSODIOL [Concomitant]
     Active Substance: URSODIOL
     Indication: Cholestasis
     Dosage: 150 MILLIGRAM, BID
     Dates: start: 20250827

REACTIONS (8)
  - Hyperbilirubinaemia [Not Recovered/Not Resolved]
  - Iron deficiency [Recovered/Resolved]
  - Pharyngitis streptococcal [Recovered/Resolved]
  - Vitamin D deficiency [Recovered/Resolved]
  - Headache [Not Recovered/Not Resolved]
  - Joint dislocation [Not Recovered/Not Resolved]
  - High density lipoprotein decreased [Not Recovered/Not Resolved]
  - Pharyngotonsillitis [Recovered/Resolved]

NARRATIVE: CASE EVENT DATE: 20231103
